FAERS Safety Report 24413570 (Version 1)
Quarter: 2024Q4

REPORT INFORMATION
  Report Type: Spontaneous
  Country: US (occurrence: US)
  Receive Date: 20241008
  Receipt Date: 20241008
  Transmission Date: 20250115
  Serious: No
  Sender: TEVA
  Company Number: US-TEVA-VS-3245374

PATIENT
  Age: 42 Year
  Sex: Male

DRUGS (1)
  1. ADDERALL [Suspect]
     Active Substance: AMPHETAMINE ASPARTATE\AMPHETAMINE SULFATE\DEXTROAMPHETAMINE SACCHARATE\DEXTROAMPHETAMINE SULFATE
     Indication: Attention deficit hyperactivity disorder
     Dosage: SINCE 4-5 YEARS, DOSE FORM: CAPSULES - EXTENDED / SUSTAINED RELEASE
     Route: 065

REACTIONS (5)
  - Dopamine dysregulation syndrome [Unknown]
  - Product quality issue [Unknown]
  - Drug ineffective [Unknown]
  - Anxiety [Unknown]
  - Disturbance in attention [Unknown]

NARRATIVE: CASE EVENT DATE: 20240909
